FAERS Safety Report 23429691 (Version 4)
Quarter: 2024Q1

REPORT INFORMATION
  Report Type: Spontaneous
  Country: CA (occurrence: CA)
  Receive Date: 20240122
  Receipt Date: 20240205
  Transmission Date: 20240410
  Serious: Yes (Death, Life-Threatening, Hospitalization, Other)
  Sender: FDA-Public Use
  Company Number: CA-PFIZER INC-202300457785

PATIENT
  Age: 79 Year
  Sex: Male

DRUGS (4)
  1. RUXIENCE [Suspect]
     Active Substance: RITUXIMAB-PVVR
     Indication: Rheumatoid arthritis
     Dosage: 1 G, DAY 1 AND DAY 15 - Q 6 MONTHS
     Route: 042
     Dates: start: 20220418, end: 20220504
  2. RUXIENCE [Suspect]
     Active Substance: RITUXIMAB-PVVR
     Dosage: 1000 MG, DAY 1 AND DAY 15 Q 6 MONTH
     Route: 042
     Dates: start: 20230531, end: 20230614
  3. RUXIENCE [Suspect]
     Active Substance: RITUXIMAB-PVVR
     Dosage: 1000 MG, DAY 1 AND DAY 15 Q 6MONTH
     Route: 042
     Dates: start: 20231214
  4. IRON [Concomitant]
     Active Substance: IRON
     Dosage: UNK, (INTRAVENOUS IRON RECEIVED),
     Route: 042

REACTIONS (8)
  - Pneumonia [Fatal]
  - Acute pulmonary oedema [Fatal]
  - Bacterial infection [Fatal]
  - Dementia [Not Recovered/Not Resolved]
  - COVID-19 [Not Recovered/Not Resolved]
  - Decreased appetite [Not Recovered/Not Resolved]
  - Pyrexia [Not Recovered/Not Resolved]
  - Asthenia [Unknown]

NARRATIVE: CASE EVENT DATE: 20231222
